FAERS Safety Report 24109991 (Version 1)
Quarter: 2024Q3

REPORT INFORMATION
  Report Type: Spontaneous
  Country: US (occurrence: US)
  Receive Date: 20240718
  Receipt Date: 20240718
  Transmission Date: 20241016
  Serious: Yes (Death, Other)
  Sender: AMGEN
  Company Number: US-AMGEN-USASP2024138819

PATIENT
  Age: 14 Year
  Sex: Male

DRUGS (5)
  1. BEVACIZUMAB [Suspect]
     Active Substance: BEVACIZUMAB
     Indication: Medulloblastoma
     Dosage: UNK
     Route: 065
  2. TOPOTECAN [Concomitant]
     Active Substance: TOPOTECAN HYDROCHLORIDE
     Indication: Medulloblastoma
     Dosage: UNK
     Route: 065
  3. TEMODAL [Concomitant]
     Active Substance: TEMOZOLOMIDE
     Indication: Medulloblastoma
     Dosage: UNK
     Route: 065
  4. AXITINIB [Concomitant]
     Active Substance: AXITINIB
     Indication: Medulloblastoma
     Dosage: 1.5 MILLIGRAM/SQ. METER/ DOSE, BID
     Route: 048
  5. ETOPOSIDE [Concomitant]
     Active Substance: ETOPOSIDE
     Indication: Medulloblastoma
     Dosage: 15 MILLIGRAM/SQ/ DOSE. METER, QD
     Route: 048

REACTIONS (6)
  - Medulloblastoma [Fatal]
  - Thrombocytopenia [Unknown]
  - Off label use [Unknown]
  - Hypertension [Unknown]
  - Diarrhoea [Unknown]
  - Proteinuria [Unknown]
